FAERS Safety Report 5330603-1 (Version None)
Quarter: 2007Q2

REPORT INFORMATION
  Report Type: 
  Country: None (occurrence: None)
  Receive Date: 20070516
  Receipt Date: 20070505
  Transmission Date: 20071010
  Serious: Yes (Hospitalization)
  Sender: FDA-Public Use
  Company Number: POMP-11021

PATIENT
  Age: 4 Year
  Sex: Male
  Weight: 17.2 kg

DRUGS (13)
  1. MYOZYME [Suspect]
     Indication: GLYCOGEN STORAGE DISEASE TYPE II
     Dosage: 10 MG/KG Q2WKS IV
     Route: 042
     Dates: start: 20070323
  2. MYOZYME [Suspect]
     Indication: GLYCOGEN STORAGE DISEASE TYPE II
     Dosage: 6 MG/KG ONCE IV
     Route: 042
     Dates: start: 20070306, end: 20070306
  3. MYOZYME [Suspect]
     Indication: GLYCOGEN STORAGE DISEASE TYPE II
     Dosage: 6 MG/KG ONCE IV
     Route: 042
     Dates: start: 20070131, end: 20070131
  4. MYOZYME [Suspect]
     Indication: GLYCOGEN STORAGE DISEASE TYPE II
     Dosage: 20 MG/KG Q2WKS IV
     Route: 042
     Dates: start: 20060815, end: 20061017
  5. MYOZYME [Suspect]
  6. ALPHA-GLUCOSIDASE (HUMAN, RECOMBINANT, CHO CELLS, GENZYME). MFR: GENZY [Suspect]
     Indication: GLYCOGEN STORAGE DISEASE TYPE II
     Dosage: 20 MG/KG Q2WKS IV
     Route: 042
     Dates: start: 20050629, end: 20060609
  7. ALPHA-GLUCOSIDASE (HUMAN, RECOMBINANT, CHO CELLS, GENZYME). MFR: GENZY [Suspect]
     Indication: GLYCOGEN STORAGE DISEASE TYPE II
     Dosage: 20 MG/KG Q2KWS IV
     Route: 042
     Dates: start: 20030925, end: 20050609
  8. LPHA-GLUCOSIDASE (HUMAN, RECOMBINANT, CHO CELLS, GENZYME). MFR: GENZYM [Suspect]
  9. CARDILOL [Concomitant]
  10. ISOMIL. MFR: ROSS LABORATORIES [Concomitant]
  11. ACETINE [Concomitant]
  12. BIOCAL [Concomitant]
  13. ANTIBIOPHILUS. MFR: NOT SPECIFIED [Concomitant]

REACTIONS (7)
  - BACTERIAL INFECTION [None]
  - HAEMOPHILUS INFECTION [None]
  - PNEUMONIA [None]
  - SERRATIA INFECTION [None]
  - SKIN LESION [None]
  - STREPTOCOCCAL INFECTION [None]
  - TYPE III IMMUNE COMPLEX MEDIATED REACTION [None]
